FAERS Safety Report 18153766 (Version 2)
Quarter: 2020Q3

REPORT INFORMATION
  Report Type: Report from Study
  Country: US (occurrence: US)
  Receive Date: 20200816
  Receipt Date: 20200928
  Transmission Date: 20201103
  Serious: Yes (Other)
  Sender: FDA-Public Use
  Company Number: NVSC2020US223480

PATIENT
  Sex: Female

DRUGS (1)
  1. COSENTYX [Suspect]
     Active Substance: SECUKINUMAB
     Indication: PRODUCT USED FOR UNKNOWN INDICATION
     Dosage: UNK UNK, QW (1 X5 WEEKS)
     Route: 065

REACTIONS (4)
  - Onychomadesis [Unknown]
  - Weight decreased [Unknown]
  - Alopecia [Unknown]
  - Haematological malignancy [Unknown]
